FAERS Safety Report 5704201-1 (Version None)
Quarter: 2008Q2

REPORT INFORMATION
  Report Type: 
  Country: None (occurrence: None)
  Receive Date: 20080409
  Receipt Date: 20080331
  Transmission Date: 20081010
  Serious: Yes (Hospitalization)
  Sender: FDA-Public Use
  Company Number: 18880

PATIENT
  Sex: Female

DRUGS (1)
  1. PACLITAXEL [Suspect]

REACTIONS (3)
  - HYPERHIDROSIS [None]
  - MALAISE [None]
  - PALLOR [None]
